FAERS Safety Report 6306205-7 (Version None)
Quarter: 2009Q3

REPORT INFORMATION
  Report Type: 
  Country: None (occurrence: None)
  Receive Date: 20090810
  Receipt Date: 20090810
  Transmission Date: 20100115
  Serious: Yes (Hospitalization)
  Sender: FDA-Public Use
  Company Number: None

PATIENT
  Age: 83 Year
  Sex: Male
  Weight: 68 kg

DRUGS (1)
  1. PHENYTOIN [Suspect]
     Indication: CONVULSION
     Dosage: 250 MG HS PO
     Route: 048
     Dates: start: 20090626, end: 20090710

REACTIONS (3)
  - FALL [None]
  - GAIT DISTURBANCE [None]
  - JOINT INJURY [None]
